FAERS Safety Report 7543696-8 (Version None)
Quarter: 2011Q2

REPORT INFORMATION
  Report Type: 
  Country: None (occurrence: None)
  Receive Date: 20110613
  Receipt Date: 20040104
  Transmission Date: 20111010
  Serious: Yes (Death, Hospitalization)
  Sender: FDA-Public Use
  Company Number: PHHO2004CA00478

PATIENT
  Sex: Female

DRUGS (1)
  1. CLOZAPINE [Suspect]
     Indication: SCHIZOPHRENIA
     Route: 048
     Dates: start: 20021114

REACTIONS (4)
  - PULMONARY THROMBOSIS [None]
  - PNEUMONIA [None]
  - NASOPHARYNGITIS [None]
  - CARDIAC FAILURE [None]
